FAERS Safety Report 9708699 (Version 1)
Quarter: 2013Q4

REPORT INFORMATION
  Report Type: Spontaneous
  Country: US (occurrence: US)
  Receive Date: 20131125
  Receipt Date: 20131125
  Transmission Date: 20140711
  Serious: Yes (Other)
  Sender: FDA-Public Use
  Company Number: US-GLAXOSMITHKLINE-A1047744A

PATIENT
  Age: 50 Year
  Sex: Male
  Weight: 111.8 kg

DRUGS (7)
  1. PROMACTA [Suspect]
     Indication: THROMBOCYTOPENIA
     Dosage: 25MG UNKNOWN
     Route: 048
     Dates: start: 20131010, end: 20131017
  2. METHADONE [Concomitant]
  3. EPZICOM [Concomitant]
  4. PREZISTA [Concomitant]
  5. VICTRELIS [Concomitant]
  6. RIBAVIRIN [Concomitant]
  7. PEGASYS [Concomitant]

REACTIONS (2)
  - Rash generalised [Recovered/Resolved]
  - Rash macular [Recovered/Resolved]
